FAERS Safety Report 7888499-X (Version None)
Quarter: 2011Q4

REPORT INFORMATION
  Report Type: 
  Country: None (occurrence: None)
  Receive Date: 20111103
  Receipt Date: 20111028
  Transmission Date: 20120403
  Serious: Yes (Hospitalization)
  Sender: FDA-Public Use
  Company Number: DE-B.I. PHARMACEUTICALS,INC./RIDGEFIELD-2011-DE-05833DE

PATIENT
  Sex: Male
  Weight: 75 kg

DRUGS (6)
  1. DIGITOXIN TAB [Concomitant]
  2. BETAVERT [Concomitant]
  3. IBUPROFEN [Concomitant]
  4. PRADAXA [Suspect]
     Indication: ATRIAL FIBRILLATION
     Dosage: 220 MG
     Route: 048
     Dates: start: 20110919, end: 20111012
  5. TORSEMIDE [Concomitant]
  6. ALLOPURINOL [Concomitant]

REACTIONS (6)
  - CONJUNCTIVAL HAEMORRHAGE [None]
  - ABDOMINAL PAIN UPPER [None]
  - GASTROOESOPHAGEAL REFLUX DISEASE [None]
  - DYSPEPSIA [None]
  - PERICARDIAL EFFUSION [None]
  - PRURITUS [None]
